FAERS Safety Report 9409211 (Version 1)
Quarter: 2013Q2

REPORT INFORMATION
  Report Type: Spontaneous
  Country: FR (occurrence: FR)
  Receive Date: 20130401
  Receipt Date: 20130401
  Transmission Date: 20140414
  Serious: Yes (Life-Threatening, Other)
  Sender: FDA-Public Use
  Company Number: 1606786

PATIENT
  Age: 76 Year
  Sex: Female
  Weight: 83 kg

DRUGS (13)
  1. (OXALIPLATIN) [Suspect]
     Indication: COLON CANCER METASTATIC
     Dosage: DOSAGE ADMINISTERED FOR 15 MINUTES VIA INTRAVENOUS DRIP.
     Route: 041
     Dates: start: 20130129, end: 20130129
  2. CALCIUM FOLINATE [Suspect]
     Indication: COLON CANCER METASTATIC
     Route: 041
     Dates: start: 20130129, end: 20130129
  3. (ZOPHREN/00955301/) [Concomitant]
  4. (TRANXENE) [Concomitant]
  5. (SOLUMEDROL) [Concomitant]
  6. (PROPRANOLOL) [Concomitant]
  7. (LEVOTHYROXINE) [Concomitant]
  8. (FUROSEMIDE) [Concomitant]
  9. (VALSARTAN) [Concomitant]
  10. (PARACETAMOL) [Concomitant]
  11. (ZOPICLONE) [Concomitant]
  12. (POTASSIUM CHLORIDE) [Concomitant]
  13. (LACTULOSE) [Concomitant]

REACTIONS (3)
  - Cardio-respiratory arrest [None]
  - Malaise [None]
  - Anaphylactic shock [None]
